FAERS Safety Report 6471813-X (Version None)
Quarter: 2009Q4

REPORT INFORMATION
  Report Type: 
  Country: None (occurrence: None)
  Receive Date: 20091203
  Receipt Date: 20080303
  Transmission Date: 20100525
  Serious: Yes (Hospitalization)
  Sender: FDA-Public Use
  Company Number: US-ELI_LILLY_AND_COMPANY-US200803000981

PATIENT
  Sex: Female
  Weight: 73.923 kg

DRUGS (6)
  1. BYETTA [Suspect]
     Indication: TYPE 2 DIABETES MELLITUS
     Dosage: 5 UG, 2/D
     Route: 058
     Dates: start: 20060214, end: 20080220
  2. BYETTA [Suspect]
     Dosage: 10 UG, DAILY (1/D)
     Route: 058
     Dates: start: 20080221, end: 20080228
  3. BYETTA [Suspect]
     Dosage: 10 UG, 2/D
     Route: 058
     Dates: start: 20080229
  4. NOVOLOG [Concomitant]
     Dosage: PER SLIDING SCALE
     Dates: start: 20050101
  5. LANTUS [Concomitant]
     Dosage: 22 U, EACH EVENING
     Dates: start: 20050101
  6. ASPIRIN [Concomitant]
     Indication: ARTHRITIS
     Dosage: UNK, UNKNOWN

REACTIONS (6)
  - BLOOD GLUCOSE INCREASED [None]
  - BRONCHITIS [None]
  - DIARRHOEA [None]
  - DIVERTICULITIS [None]
  - PYREXIA [None]
  - THERAPEUTIC RESPONSE DECREASED [None]
